FAERS Safety Report 4977930-5 (Version None)
Quarter: 2006Q2

REPORT INFORMATION
  Report Type: 
  Country: None (occurrence: None)
  Receive Date: 20060420
  Receipt Date: 20051026
  Transmission Date: 20061013
  Serious: Yes (Hospitalization, Disabling, Other)
  Sender: FDA-Public Use
  Company Number: US-MERCK-0510USA09441

PATIENT
  Age: 52 Year
  Sex: Male
  Weight: 93 kg

DRUGS (10)
  1. VIOXX [Suspect]
     Indication: OSTEOARTHRITIS
     Route: 048
     Dates: start: 20011126, end: 20040901
  2. PRILOSEC [Concomitant]
     Route: 065
  3. ZOLOFT [Concomitant]
     Indication: DEPRESSION
     Route: 065
     Dates: start: 20000207, end: 20031029
  4. HYDROCHLOROTHIAZIDE AND TRIAMTERENE [Concomitant]
     Indication: HYPERTENSION
     Route: 065
     Dates: start: 19990806, end: 20050128
  5. WELLBUTRIN [Concomitant]
     Route: 065
  6. ACETAMINOPHEN AND ASPIRIN AND CAFFEINE AND HYDROCODONE BITARTRATE [Concomitant]
     Indication: PAIN
     Route: 065
     Dates: start: 20010104
  7. NEXIUM [Concomitant]
     Route: 065
  8. AVELOX [Concomitant]
     Route: 065
  9. PAXIL [Concomitant]
     Route: 065
  10. ZITHROMAX [Concomitant]
     Route: 065

REACTIONS (17)
  - ANXIETY [None]
  - BACK PAIN [None]
  - BURSITIS [None]
  - CEREBROVASCULAR ACCIDENT [None]
  - CORONARY ARTERY DISEASE [None]
  - HYPOAESTHESIA [None]
  - INJURY [None]
  - INTERVERTEBRAL DISC DEGENERATION [None]
  - JOINT SURGERY [None]
  - MENTAL DISORDER [None]
  - MUSCULOSKELETAL DISCOMFORT [None]
  - MYOCARDIAL INFARCTION [None]
  - NAUSEA [None]
  - NECK PAIN [None]
  - SHOULDER PAIN [None]
  - SINUS DISORDER [None]
  - SLEEP APNOEA SYNDROME [None]
